FAERS Safety Report 4825065-4 (Version None)
Quarter: 2005Q4

REPORT INFORMATION
  Report Type: 
  Country: None (occurrence: None)
  Receive Date: 20051109
  Receipt Date: 20051109
  Transmission Date: 20060501
  Serious: Yes (Life-Threatening)
  Sender: FDA-Public Use
  Company Number: None

PATIENT
  Age: 49 Year
  Sex: Male

DRUGS (6)
  1. AMIODARONE    150MG/3ML [Suspect]
     Indication: AORTIC VALVE REPLACEMENT
     Dosage: 1MG/MIN X 6 HOURS; 0.5MG/MIN   CONTINUOUS   IV DRIP
     Route: 041
     Dates: start: 20050719, end: 20050720
  2. AMIODARONE    150MG/3ML [Suspect]
     Indication: ATRIAL FIBRILLATION
     Dosage: 1MG/MIN X 6 HOURS; 0.5MG/MIN   CONTINUOUS   IV DRIP
     Route: 041
     Dates: start: 20050719, end: 20050720
  3. AMIODARONE    150MG/3ML [Suspect]
     Indication: PROPHYLAXIS
     Dosage: 1MG/MIN X 6 HOURS; 0.5MG/MIN   CONTINUOUS   IV DRIP
     Route: 041
     Dates: start: 20050719, end: 20050720
  4. AMIODARONE    200MG [Suspect]
     Indication: AORTIC VALVE REPLACEMENT
     Dosage: 400MG   BID   PO
     Route: 048
     Dates: start: 20050719, end: 20050725
  5. AMIODARONE    200MG [Suspect]
     Indication: ATRIAL FIBRILLATION
     Dosage: 400MG   BID   PO
     Route: 048
     Dates: start: 20050719, end: 20050725
  6. AMIODARONE    200MG [Suspect]
     Indication: PROPHYLAXIS
     Dosage: 400MG   BID   PO
     Route: 048
     Dates: start: 20050719, end: 20050725

REACTIONS (3)
  - ATRIOVENTRICULAR BLOCK COMPLETE [None]
  - CARDIAC ARREST [None]
  - POST PROCEDURAL COMPLICATION [None]
